FAERS Safety Report 5259508-1 (Version None)
Quarter: 2007Q1

REPORT INFORMATION
  Report Type: 
  Country: None (occurrence: None)
  Receive Date: 20061218
  Receipt Date: 20061003
  Transmission Date: 20070707
  Serious: Yes (Hospitalization)
  Sender: FDA-Public Use
  Company Number: 008749

PATIENT
  Age: 55 Year
  Sex: Female

DRUGS (2)
  1. ENJUVIA [Suspect]
     Indication: HOT FLUSH
     Dosage: 1 TABLET, QD, ORAL
     Route: 048
     Dates: start: 20060901, end: 20060914
  2. ENJUVIA [Suspect]
     Indication: INSOMNIA
     Dosage: 1 TABLET, QD, ORAL
     Route: 048
     Dates: start: 20060901, end: 20060914

REACTIONS (1)
  - MYOCARDIAL INFARCTION [None]
